FAERS Safety Report 20007577 (Version 2)
Quarter: 2021Q4

REPORT INFORMATION
  Report Type: Spontaneous
  Country: CN (occurrence: None)
  Receive Date: 20211028
  Receipt Date: 20211229
  Transmission Date: 20220303
  Serious: Yes (Other)
  Sender: FDA-Public Use
  Company Number: CN-ROCHE-2944086

PATIENT
  Age: 75 Year
  Sex: Male

DRUGS (20)
  1. MABTHERA [Suspect]
     Active Substance: RITUXIMAB
     Indication: Diffuse large B-cell lymphoma
     Dosage: R-CHOP
     Route: 065
     Dates: start: 20210314
  2. MABTHERA [Suspect]
     Active Substance: RITUXIMAB
     Dosage: R-GEMOX
     Route: 065
     Dates: start: 20210525
  3. MABTHERA [Suspect]
     Active Substance: RITUXIMAB
     Dosage: RR
     Route: 065
     Dates: start: 20210723
  4. LENALIDOMIDE [Suspect]
     Active Substance: LENALIDOMIDE
     Indication: Diffuse large B-cell lymphoma
     Dosage: RR
     Route: 065
     Dates: start: 20210723
  5. LENALIDOMIDE [Suspect]
     Active Substance: LENALIDOMIDE
     Route: 065
     Dates: start: 20211110
  6. CYCLOPHOSPHAMIDE [Suspect]
     Active Substance: CYCLOPHOSPHAMIDE
     Indication: Diffuse large B-cell lymphoma
     Dosage: R-CHOP
     Route: 065
     Dates: start: 20210314
  7. CYCLOPHOSPHAMIDE [Suspect]
     Active Substance: CYCLOPHOSPHAMIDE
     Dosage: R-GEMOX
     Route: 065
     Dates: start: 20210505
  8. CYCLOPHOSPHAMIDE [Suspect]
     Active Substance: CYCLOPHOSPHAMIDE
     Dosage: RR
     Route: 065
     Dates: start: 20210723
  9. DOXORUBICIN [Suspect]
     Active Substance: DOXORUBICIN
     Indication: Diffuse large B-cell lymphoma
     Dosage: R-CHOP
     Route: 065
     Dates: start: 20210314
  10. DOXORUBICIN [Suspect]
     Active Substance: DOXORUBICIN
     Dosage: R-GEMOX
     Route: 065
     Dates: start: 20210505
  11. DOXORUBICIN [Suspect]
     Active Substance: DOXORUBICIN
     Dosage: RR
     Route: 065
     Dates: start: 20210723
  12. VINCRISTINE [Suspect]
     Active Substance: VINCRISTINE
     Indication: Diffuse large B-cell lymphoma
     Dosage: R-CHOP
     Route: 065
     Dates: start: 20210314
  13. VINCRISTINE [Suspect]
     Active Substance: VINCRISTINE
     Dosage: R-GEMOX
     Route: 065
     Dates: start: 20210505
  14. VINCRISTINE [Suspect]
     Active Substance: VINCRISTINE
     Dosage: RR
     Route: 065
     Dates: start: 20210723
  15. PREDNISONE [Suspect]
     Active Substance: PREDNISONE
     Indication: Diffuse large B-cell lymphoma
     Dosage: R-CHOP
     Route: 065
     Dates: start: 20210314
  16. PREDNISONE [Suspect]
     Active Substance: PREDNISONE
     Dosage: R-GEMOX
     Route: 065
     Dates: start: 20210505
  17. PREDNISONE [Suspect]
     Active Substance: PREDNISONE
     Dosage: RR
     Route: 065
     Dates: start: 20210723
  18. GEMCITABINE [Suspect]
     Active Substance: GEMCITABINE
     Indication: Diffuse large B-cell lymphoma
     Dosage: R-GEMOX
     Route: 065
     Dates: start: 20210525
  19. OXALIPLATIN [Suspect]
     Active Substance: OXALIPLATIN
     Indication: Diffuse large B-cell lymphoma
     Dosage: R-GEMOX
     Route: 065
     Dates: start: 20210525
  20. ZANUBRUTINIB [Concomitant]
     Active Substance: ZANUBRUTINIB
     Indication: Diffuse large B-cell lymphoma
     Dates: start: 20211110

REACTIONS (4)
  - Myelosuppression [Unknown]
  - Drug-induced liver injury [Unknown]
  - Mental disorder [Recovering/Resolving]
  - Abnormal behaviour [Recovering/Resolving]

NARRATIVE: CASE EVENT DATE: 20211208
